FAERS Safety Report 7223090-X (Version None)
Quarter: 2011Q1

REPORT INFORMATION
  Report Type: 
  Country: None (occurrence: None)
  Receive Date: 20110112
  Receipt Date: 20100209
  Transmission Date: 20110831
  Serious: No
  Sender: FDA-Public Use
  Company Number: US-ALLERGAN-1000201US

PATIENT
  Age: 45 Year
  Sex: Female
  Weight: 63.492 kg

DRUGS (5)
  1. SYNTHROID [Concomitant]
  2. NASACORT [Concomitant]
  3. HYDROXYZINE [Concomitant]
  4. EXCEDRIN (MIGRAINE) [Concomitant]
  5. RESTASIS [Suspect]
     Indication: DRY EYE
     Dosage: 1 GTT, BID
     Route: 047
     Dates: start: 20100101, end: 20100105

REACTIONS (3)
  - CHEILITIS [None]
  - LIP PAIN [None]
  - LIP SWELLING [None]
